FAERS Safety Report 21642113 (Version 1)
Quarter: 2022Q4

REPORT INFORMATION
  Report Type: Spontaneous
  Country: ES (occurrence: ES)
  Receive Date: 20221125
  Receipt Date: 20221125
  Transmission Date: 20230112
  Serious: Yes (Death, Other)
  Sender: FDA-Public Use
  Company Number: ES-AEMPS-1287264

PATIENT
  Age: 65 Year
  Sex: Female
  Weight: 55 kg

DRUGS (2)
  1. AMIODARONE [Interacting]
     Active Substance: AMIODARONE
     Indication: Atrial fibrillation
     Dosage: 37.5 MILLIGRAM, EVERY HOUR
     Route: 065
     Dates: start: 20221020
  2. DEXMEDETOMIDINE HYDROCHLORIDE [Interacting]
     Active Substance: DEXMEDETOMIDINE HYDROCHLORIDE
     Indication: Sedation
     Dosage: 0.5 UGRS X KG X HOUR
     Route: 042
     Dates: start: 20221020, end: 20221021

REACTIONS (1)
  - Ventricular asystole [Fatal]

NARRATIVE: CASE EVENT DATE: 20221021
